FAERS Safety Report 9722096 (Version 2)
Quarter: 2013Q4

REPORT INFORMATION
  Report Type: Spontaneous
  Country: US (occurrence: US)
  Receive Date: 20131202
  Receipt Date: 20131213
  Transmission Date: 20140711
  Serious: No
  Sender: FDA-Public Use
  Company Number: US-BIOGENIDEC-2013BI109997

PATIENT
  Age: 56 Year
  Sex: Female

DRUGS (3)
  1. AVONEX [Suspect]
     Indication: MULTIPLE SCLEROSIS
     Route: 030
     Dates: start: 201110
  2. AVONEX [Suspect]
     Indication: MULTIPLE SCLEROSIS
     Route: 030
     Dates: start: 20111101, end: 20131101
  3. AMPYRA [Concomitant]
     Indication: MULTIPLE SCLEROSIS
     Dates: start: 20130107, end: 20131110

REACTIONS (8)
  - Tremor [Not Recovered/Not Resolved]
  - Multiple sclerosis relapse [Recovered/Resolved]
  - Drug ineffective [Not Recovered/Not Resolved]
  - Muscular weakness [Not Recovered/Not Resolved]
  - Gait disturbance [Recovered/Resolved]
  - Visual impairment [Not Recovered/Not Resolved]
  - Depression [Recovered/Resolved]
  - Injection site pain [Not Recovered/Not Resolved]
